FAERS Safety Report 7243940-0 (Version None)
Quarter: 2011Q1

REPORT INFORMATION
  Report Type: 
  Country: None (occurrence: None)
  Receive Date: 20110125
  Receipt Date: 20110117
  Transmission Date: 20110831
  Serious: Yes (Other)
  Sender: FDA-Public Use
  Company Number: B0695648A

PATIENT
  Age: 44 Year
  Sex: Male

DRUGS (1)
  1. NEOTIGASON [Suspect]
     Dosage: 25MG PER DAY
     Route: 065

REACTIONS (1)
  - SUICIDE ATTEMPT [None]
